FAERS Safety Report 7712885-1 (Version None)
Quarter: 2011Q3

REPORT INFORMATION
  Report Type: 
  Country: None (occurrence: None)
  Receive Date: 20110826
  Receipt Date: 20110823
  Transmission Date: 20111222
  Serious: Yes (Life-Threatening, Hospitalization, Other)
  Sender: FDA-Public Use
  Company Number: PHHO2010IE03795

PATIENT
  Sex: Male
  Weight: 104 kg

DRUGS (22)
  1. ENALAPRIL MALEATE [Suspect]
     Indication: CARDIAC FAILURE
     Dosage: CODE NOT BROKEN
     Dates: start: 20110810, end: 20110817
  2. ISOSORBIDE DINITRATE [Suspect]
     Dosage: UNK
     Dates: start: 20110224, end: 20110225
  3. PERINDOPRIL [Concomitant]
     Indication: CARDIAC FAILURE
  4. ENALAPRIL MALEATE [Suspect]
     Dosage: CODE NOT BROKEN
     Dates: start: 20110817
  5. NSA [Concomitant]
  6. QUININE SULFATE [Concomitant]
  7. CLOPIDOGREL [Concomitant]
     Indication: MYOCARDIAL ISCHAEMIA
     Dosage: 75 MG, QD
     Dates: start: 20100101
  8. ALISKIREN [Suspect]
     Indication: CARDIAC FAILURE
     Dosage: CODE NOT BROKEN
     Dates: start: 20110810, end: 20110817
  9. FUROSEMIDE [Concomitant]
     Indication: CARDIAC FAILURE
     Dosage: 20 MG, QD
  10. BLINDED ALISKIREN [Suspect]
     Indication: CARDIAC FAILURE
     Dosage: CODE NOT BROKEN
     Route: 048
     Dates: start: 20091209, end: 20100303
  11. ENALAPRIL MALEATE [Suspect]
     Indication: CARDIAC FAILURE
     Dosage: CODE NOT BROKEN
     Route: 048
     Dates: start: 20091209, end: 20100303
  12. BISOPROLOL FUMARATE [Concomitant]
     Indication: CARDIAC FAILURE
     Dosage: 2.5 MG, QD
  13. BISOPROLOL FUMARATE [Concomitant]
     Indication: MYOCARDIAL ISCHAEMIA
  14. BLINDED ALISKIREN [Suspect]
     Dosage: CODE NOT BROKEN
     Route: 048
     Dates: start: 20101215, end: 20110224
  15. DIGOXIN [Concomitant]
  16. METOPROLOL [Suspect]
  17. SIMAVASTATIN [Concomitant]
     Indication: MYOCARDIAL ISCHAEMIA
     Dosage: 20 MG, QD
  18. BLINDED NO TREATMENT RECEIVED [Suspect]
     Indication: CARDIAC FAILURE
     Dosage: CODE NOT BROKEN
     Route: 048
     Dates: start: 20091209, end: 20100303
  19. ENALAPRIL MALEATE [Suspect]
     Dosage: CODE NOT BROKEN
     Route: 048
     Dates: start: 20101215, end: 20110224
  20. BLINDED NO TREATMENT RECEIVED [Suspect]
     Dosage: CODE NOT BROKEN
     Route: 048
     Dates: start: 20101215, end: 20110224
  21. ASPIRIN [Concomitant]
     Indication: MYOCARDIAL ISCHAEMIA
     Dosage: 75 MG, QD
  22. PANTOPRAZOLE [Concomitant]
     Indication: DYSPEPSIA
     Dosage: 40 MG, QD
     Dates: start: 20100101

REACTIONS (12)
  - CHEST PAIN [None]
  - HYPOTENSION [None]
  - ASTHENIA [None]
  - ACUTE MYOCARDIAL INFARCTION [None]
  - TACHYCARDIA [None]
  - PULMONARY OEDEMA [None]
  - DYSPNOEA [None]
  - CARDIAC FAILURE [None]
  - DIZZINESS [None]
  - LOWER RESPIRATORY TRACT INFECTION [None]
  - DISEASE PROGRESSION [None]
  - CONCOMITANT DISEASE PROGRESSION [None]
